FAERS Safety Report 6455228-6 (Version None)
Quarter: 2009Q4

REPORT INFORMATION
  Report Type: 
  Country: None (occurrence: None)
  Receive Date: 20091119
  Receipt Date: 20091112
  Transmission Date: 20100525
  Serious: Yes (Death)
  Sender: FDA-Public Use
  Company Number: 430651

PATIENT
  Age: 14 Year
  Sex: Male

DRUGS (2)
  1. METHYLPREDNISOLONE [Suspect]
     Indication: HYPOXIA
     Dosage: 10 MG/KG;
  2. PREDNISONE [Suspect]
     Indication: HYPOXIA
     Dosage: 1 MG/KG; .5 MG/KG;

REACTIONS (1)
  - MUCORMYCOSIS [None]
